FAERS Safety Report 24809615 (Version 2)
Quarter: 2025Q1

REPORT INFORMATION
  Report Type: Report from Study
  Country: CA (occurrence: CA)
  Receive Date: 20250106
  Receipt Date: 20250131
  Transmission Date: 20250409
  Serious: Yes (Other)
  Sender: VIIV
  Company Number: CA-VIIV HEALTHCARE-CA2024165058

PATIENT

DRUGS (6)
  1. CABOTEGRAVIR\RILPIVIRINE [Suspect]
     Active Substance: CABOTEGRAVIR\RILPIVIRINE
     Indication: HIV infection
  2. CABOTEGRAVIR\RILPIVIRINE [Suspect]
     Active Substance: CABOTEGRAVIR\RILPIVIRINE
  3. CABOTEGRAVIR\RILPIVIRINE [Suspect]
     Active Substance: CABOTEGRAVIR\RILPIVIRINE
  4. VOCABRIA [Suspect]
     Active Substance: CABOTEGRAVIR SODIUM
     Indication: HIV infection
     Dosage: 30 MG, QD
     Route: 048
     Dates: start: 20241215
  5. EDURANT [Suspect]
     Active Substance: RILPIVIRINE HYDROCHLORIDE
     Indication: HIV infection
     Dosage: 25 MG, QD
     Route: 048
     Dates: start: 20241215
  6. DOVATO [Concomitant]
     Active Substance: DOLUTEGRAVIR SODIUM\LAMIVUDINE
     Indication: Product used for unknown indication

REACTIONS (5)
  - Syncope [Unknown]
  - Gait disturbance [Unknown]
  - Arthralgia [Unknown]
  - Fatigue [Unknown]
  - Somnolence [Unknown]
